FAERS Safety Report 5736853-4 (Version None)
Quarter: 2008Q2

REPORT INFORMATION
  Report Type: 
  Country: None (occurrence: None)
  Receive Date: 20080513
  Receipt Date: 20080229
  Transmission Date: 20081010
  Serious: Yes (Hospitalization)
  Sender: FDA-Public Use
  Company Number: US-GENENTECH-260927

PATIENT
  Sex: Male

DRUGS (5)
  1. BLINDED BEVACIZUMAB [Suspect]
     Indication: PROSTATE CANCER
     Dosage: UNK, Q3W
     Route: 042
     Dates: start: 20070830
  2. BLINDED PLACEBO [Suspect]
     Indication: PROSTATE CANCER
     Dosage: UNK, Q3W
     Route: 042
     Dates: start: 20070830
  3. DEXAMETHASONE [Suspect]
     Indication: PROSTATE CANCER
     Dosage: 8 MG, Q3W
     Route: 048
     Dates: start: 20070830
  4. TAXOTERE [Suspect]
     Indication: PROSTATE CANCER
     Dosage: 75 MG/M2, Q3W
     Route: 042
     Dates: start: 20070830
  5. PREDNISONE TAB [Suspect]
     Indication: PROSTATE CANCER
     Dosage: 5 MG, BID
     Route: 048
     Dates: start: 20070830

REACTIONS (2)
  - CHOLECYSTITIS [None]
  - GASTROINTESTINAL HAEMORRHAGE [None]
